FAERS Safety Report 9516649 (Version 3)
Quarter: 2015Q1

REPORT INFORMATION
  Report Type: Report from Study
  Country: KR (occurrence: KR)
  Receive Date: 20130911
  Receipt Date: 20150121
  Transmission Date: 20150721
  Serious: Yes (Death, Life-Threatening, Hospitalization, Other)
  Sender: FDA-Public Use
  Company Number: KR-GLAXOSMITHKLINE-B0921869A

PATIENT
  Age: 81 Year
  Sex: Male
  Weight: 48 kg

DRUGS (3)
  1. TOPOTECAN HYDROCHLORIDE. [Suspect]
     Active Substance: TOPOTECAN HYDROCHLORIDE
     Dosage: 2.5 MG, QD
     Dates: start: 20121226, end: 20121229
  2. TOPOTECAN HYDROCHLORIDE. [Suspect]
     Active Substance: TOPOTECAN HYDROCHLORIDE
     Indication: SMALL CELL LUNG CANCER
     Dosage: 2.5 MG, QD
     Route: 048
     Dates: start: 20121117, end: 20121121
  3. TOPOTECAN HYDROCHLORIDE. [Suspect]
     Active Substance: TOPOTECAN HYDROCHLORIDE
     Dosage: 2.5 MG, QD
     Dates: start: 20130131, end: 20130204

REACTIONS (3)
  - Neutropenia [Recovered/Resolved]
  - Pneumonia aspiration [Fatal]
  - Thrombocytopenia [Recovered/Resolved]

NARRATIVE: CASE EVENT DATE: 20130214
